FAERS Safety Report 4540540-8 (Version None)
Quarter: 2004Q4

REPORT INFORMATION
  Report Type: 
  Country: None (occurrence: None)
  Receive Date: 20041228
  Receipt Date: 20041228
  Transmission Date: 20050328
  Serious: Yes (Death)
  Sender: FDA-Public Use
  Company Number: None

PATIENT
  Sex: Male
  Weight: 60 kg

DRUGS (2)
  1. IRINOTECAN [Suspect]
     Indication: CARCINOMA
     Dosage: 50 MG/M2
  2. CISPLATIN [Suspect]
     Indication: CARCINOMA
     Dosage: 30 MG/M2

REACTIONS (1)
  - DISEASE PROGRESSION [None]
